FAERS Safety Report 8391569-3 (Version None)
Quarter: 2012Q2

REPORT INFORMATION
  Report Type: 
  Country: None (occurrence: None)
  Receive Date: 20120529
  Receipt Date: 20120522
  Transmission Date: 20120825
  Serious: Yes (Death)
  Sender: FDA-Public Use
  Company Number: US-PFIZER INC-2010001116

PATIENT
  Age: 48 Year
  Sex: Female

DRUGS (7)
  1. METHADONE [Suspect]
     Dosage: UNK
     Route: 048
     Dates: start: 20080101
  2. VENLAFAXINE HCL [Suspect]
     Dosage: UNK
     Route: 048
     Dates: start: 20080101
  3. OXYCODONE HCL [Suspect]
     Dosage: UNK
     Dates: start: 20080101
  4. LITHIUM [Suspect]
     Dosage: UNK
     Route: 048
     Dates: start: 20080101
  5. PROPOXYPHENE HYDROCHLORIDE [Suspect]
     Dosage: UNK
     Route: 048
     Dates: start: 20080101
  6. VARENICLINE TARTRATE [Suspect]
     Dosage: UNK
     Route: 048
     Dates: start: 20080101
  7. QUETIAPINE [Suspect]
     Dosage: UNK
     Route: 048
     Dates: start: 20080101

REACTIONS (1)
  - COMPLETED SUICIDE [None]
